FAERS Safety Report 9795920 (Version 4)
Quarter: 2015Q2

REPORT INFORMATION
  Report Type: Report from Study
  Country: US (occurrence: US)
  Receive Date: 20140103
  Receipt Date: 20150417
  Transmission Date: 20150821
  Serious: Yes (Hospitalization)
  Sender: FDA-Public Use
  Company Number: US-PFIZER INC-2013373912

PATIENT
  Age: 55 Year
  Sex: Female

DRUGS (7)
  1. OXALIPLATIN. [Suspect]
     Active Substance: OXALIPLATIN
     Indication: COLORECTAL CANCER METASTATIC
     Dosage: 85 MG, 1 IN 2 WEEKS (LAST DOSE ON 16MAY2013)
     Route: 042
     Dates: start: 20130516, end: 20130516
  2. OXALIPLATIN. [Suspect]
     Active Substance: OXALIPLATIN
     Dosage: 65 MG, 1 IN 2 WEEKS
     Route: 042
     Dates: start: 20130606
  3. IRINOTECAN HCL [Suspect]
     Active Substance: IRINOTECAN HYDROCHLORIDE
     Dosage: 120 MG,1 IN 2 WEEKS
     Route: 042
     Dates: start: 20130606
  4. FLUOROURACIL. [Suspect]
     Active Substance: FLUOROURACIL
     Indication: COLORECTAL CANCER METASTATIC
     Dosage: 1600 MG, 1 IN 2 WEEKS (THE DATE OF THE LAST DOSE PRIOR TO SAE:16MAY2013)
     Route: 042
     Dates: start: 20130516
  5. IRINOTECAN HCL [Suspect]
     Active Substance: IRINOTECAN HYDROCHLORIDE
     Indication: COLORECTAL CANCER METASTATIC
     Dosage: 165 MG, 1 IN 2 WEEKS
     Route: 042
     Dates: start: 20130516, end: 20130516
  6. BEVACIZUMAB [Suspect]
     Active Substance: BEVACIZUMAB
     Indication: COLORECTAL CANCER METASTATIC
     Dosage: 5 MG/KG,1 IN 2 WK (LAST DOSE PRIOR TO EVENT:16MAY2013 (5 MG/KG,1 IN 2 WK))
     Route: 042
     Dates: start: 20130516
  7. FOLINIC ACID [Suspect]
     Active Substance: LEUCOVORIN
     Indication: COLORECTAL CANCER METASTATIC
     Dosage: 200 MG, 1 IN 2 WEEKS LIQUID. LAST DOSE PRIOR TO THE EVENT: 16MAY2013 (200 MG,1 IN 2 WK)
     Route: 042
     Dates: start: 20130516

REACTIONS (2)
  - Pyrexia [Recovered/Resolved]
  - Diarrhoea [Recovered/Resolved]

NARRATIVE: CASE EVENT DATE: 20130524
